FAERS Safety Report 10390273 (Version 3)
Quarter: 2014Q4

REPORT INFORMATION
  Report Type: Spontaneous
  Country: US (occurrence: US)
  Receive Date: 20140818
  Receipt Date: 20141028
  Transmission Date: 20150528
  Serious: No
  Sender: FDA-Public Use
  Company Number: US-PFIZER INC-2014225223

PATIENT
  Age: 56 Year
  Sex: Female
  Weight: 57 kg

DRUGS (23)
  1. VITAMIN D3 [Concomitant]
     Active Substance: CHOLECALCIFEROL
     Dosage: 1000 IU, DAILY
     Route: 048
  2. PRILOSEC [Concomitant]
     Active Substance: OMEPRAZOLE MAGNESIUM
     Dosage: 40 MG, DAILY (AT BEDTIME)
     Route: 048
  3. FISH OIL [Concomitant]
     Active Substance: FISH OIL
     Dosage: 1 DF, 1X/DAY
     Route: 048
  4. SEA OMEGA [Concomitant]
     Dosage: UNK (340/1000 MG)
     Route: 048
  5. XANAX [Concomitant]
     Active Substance: ALPRAZOLAM
     Dosage: UNK
     Route: 048
  6. LIPITOR [Concomitant]
     Active Substance: ATORVASTATIN CALCIUM
     Dosage: 1 DF, DAILY
     Route: 048
     Dates: start: 20130717
  7. PROZAC [Concomitant]
     Active Substance: FLUOXETINE HYDROCHLORIDE
     Dosage: UNK
     Route: 048
  8. MYRBETRIQ [Concomitant]
     Active Substance: MIRABEGRON
     Dosage: 1 DF, DAILY
     Route: 048
     Dates: start: 20131017
  9. TOPAMAX [Concomitant]
     Active Substance: TOPIRAMATE
     Dosage: 50MG IN AM AND 2100MG IN PM
     Route: 048
  10. VENLAFAXINE [Concomitant]
     Active Substance: VENLAFAXINE HYDROCHLORIDE
     Dosage: 225 MG, DAILY
     Route: 048
  11. DITROPAN [Concomitant]
     Active Substance: OXYBUTYNIN CHLORIDE
     Dosage: 3 DF, 1X/DAY AT BEDTIME
     Route: 048
  12. KLONOPIN [Concomitant]
     Active Substance: CLONAZEPAM
     Dosage: 0.5 MG, DAILY (TAKE 1 TAB, AT BED TIME)
     Route: 048
  13. MAG-OX [Concomitant]
     Dosage: 400 MG, DAILY
     Route: 048
  14. VAGIFEM [Concomitant]
     Active Substance: ESTRADIOL
     Dosage: 1 DF, 1X/DAY
     Route: 067
     Dates: start: 20130826
  15. ANTIVERT [Concomitant]
     Active Substance: MECLIZINE HYDROCHLORIDE
     Dosage: 25 MG, 3X/DAY
     Dates: start: 20130429
  16. PYRIDIUM [Concomitant]
     Active Substance: PHENAZOPYRIDINE
     Indication: PAIN
     Dosage: 100 MG, 3X/DAY (AS NEEDED)
     Route: 048
     Dates: start: 20140929
  17. CIPRO [Concomitant]
     Active Substance: CIPROFLOXACIN HYDROCHLORIDE
     Dosage: 250 MG, 2X/ (TAKE 1 TAB))
     Route: 048
  18. ULTRAM ER [Concomitant]
     Active Substance: TRAMADOL HYDROCHLORIDE
     Indication: PAIN
     Dosage: 200 MG, 2X/DAY (AS NEEDED)
  19. PREMARIN [Suspect]
     Active Substance: ESTROGENS, CONJUGATED
     Dosage: 0.625 MG/G, UNK (THREE TIMES A WEEK)
     Route: 067
     Dates: start: 20140320
  20. VAGIFEM [Concomitant]
     Active Substance: ESTRADIOL
     Dosage: 1 DF, 2X/WEEK
     Route: 067
  21. VICODIN [Concomitant]
     Active Substance: ACETAMINOPHEN\HYDROCODONE BITARTRATE
     Dosage: 500 G, AS NEEDED (TAKE 1-2 TABS AT BEDTIME)
     Route: 048
     Dates: start: 20130709
  22. MELATONIN [Concomitant]
     Active Substance: MELATONIN
     Dosage: 9 MG, DAILY (AT BEDTIME)
     Route: 048
  23. VITAMIN E [Concomitant]
     Active Substance: .ALPHA.-TOCOPHEROL
     Dosage: 400 IU, DAILY
     Route: 048

REACTIONS (25)
  - Urinary incontinence [Unknown]
  - Pelvic pain [Unknown]
  - Hepatic cyst [Unknown]
  - Constipation [Unknown]
  - Dizziness [Unknown]
  - Hypoaesthesia [Unknown]
  - Distractibility [Unknown]
  - Disturbance in attention [Unknown]
  - Anxiety [Unknown]
  - Weight decreased [Unknown]
  - Back pain [Unknown]
  - Gait disturbance [Unknown]
  - Asthenia [Unknown]
  - Arthralgia [Unknown]
  - Pollakiuria [Unknown]
  - Dysphoria [Unknown]
  - Malaise [Unknown]
  - Pain [Unknown]
  - Myalgia [Unknown]
  - Nervousness [Unknown]
  - Feeling jittery [Unknown]
  - Nocturia [Recovering/Resolving]
  - Micturition urgency [Unknown]
  - Tremor [Unknown]
  - Dyspareunia [Unknown]
